FAERS Safety Report 6844954-2 (Version None)
Quarter: 2010Q3

REPORT INFORMATION
  Report Type: 
  Country: None (occurrence: None)
  Receive Date: 20100715
  Receipt Date: 20100706
  Transmission Date: 20110219
  Serious: Yes (Death, Life-Threatening, Hospitalization, Other)
  Sender: FDA-Public Use
  Company Number: CA-AMGEN-KDL362239

PATIENT
  Sex: Male

DRUGS (1)
  1. ENBREL [Suspect]
     Indication: RHEUMATOID ARTHRITIS
     Dates: start: 20030613

REACTIONS (6)
  - CARDIAC NEOPLASM MALIGNANT [None]
  - DEATH [None]
  - DIFFUSE LARGE B-CELL LYMPHOMA [None]
  - FACIAL PAIN [None]
  - HYPOAESTHESIA [None]
  - METASTASES TO MENINGES [None]
